FAERS Safety Report 9268814 (Version 1)
Quarter: 2013Q2

REPORT INFORMATION
  Report Type: Report from Study
  Country: US (occurrence: US)
  Receive Date: 20130502
  Receipt Date: 20130502
  Transmission Date: 20140414
  Serious: Yes (Hospitalization)
  Sender: FDA-Public Use
  Company Number: PHEH2011US013325

PATIENT
  Age: 19 Year
  Sex: Female

DRUGS (1)
  1. TOBRAMYCIN [Suspect]
     Dosage: 300 MG, BID (TWICE A DAY FOR 28 DAY, THEN OFF FOR 28 DAY)
     Dates: start: 20100408

REACTIONS (3)
  - Gastritis [Unknown]
  - Upper limb fracture [Unknown]
  - Lower limb fracture [Unknown]
